FAERS Safety Report 9111948 (Version 1)
Quarter: 2013Q1

REPORT INFORMATION
  Report Type: Spontaneous
  Country: US (occurrence: US)
  Receive Date: 20130219
  Receipt Date: 20130219
  Transmission Date: 20140127
  Serious: Yes (Other)
  Sender: FDA-Public Use
  Company Number: US-BRISTOL-MYERS SQUIBB COMPANY-16399255

PATIENT
  Age: 69 Year
  Sex: Male
  Weight: 107 kg

DRUGS (7)
  1. ORENCIA [Suspect]
     Indication: RHEUMATOID ARTHRITIS
     Dosage: LAST DOSE 13NOV11,MISSED DOSE ON 13DEC2011
     Route: 042
     Dates: start: 200911
  2. PREDNISONE [Concomitant]
  3. AMLODIPINE [Concomitant]
  4. LISINOPRIL [Concomitant]
  5. DILTIAZEM HCL [Concomitant]
  6. ALBUTEROL [Concomitant]
  7. VICODIN [Concomitant]
     Indication: PAIN

REACTIONS (1)
  - Pneumonia [Unknown]
